FAERS Safety Report 14937377 (Version 1)
Quarter: 2018Q2

REPORT INFORMATION
  Report Type: Spontaneous
  Country: FR (occurrence: FR)
  Receive Date: 20180525
  Receipt Date: 20180525
  Transmission Date: 20180711
  Serious: Yes (Other)
  Sender: FDA-Public Use
  Company Number: FR-MERCK KGAA-2048444

PATIENT
  Age: 63 Year
  Sex: Female

DRUGS (1)
  1. NOVOTHYROX [Suspect]
     Active Substance: LEVOTHYROXINE SODIUM
     Indication: PRODUCT USED FOR UNKNOWN INDICATION

REACTIONS (19)
  - Decreased interest [None]
  - Asthenia [None]
  - Blood calcium increased [None]
  - Stress [None]
  - Feeling abnormal [None]
  - Headache [None]
  - Fear [None]
  - Blood creatinine increased [None]
  - Fatigue [None]
  - Thyroglobulin increased [Not Recovered/Not Resolved]
  - Mood altered [None]
  - Pain in extremity [None]
  - Blood thyroid stimulating hormone decreased [Not Recovered/Not Resolved]
  - Blood thyroid stimulating hormone increased [None]
  - Dizziness [None]
  - Weight increased [None]
  - Hypokinesia [None]
  - Social avoidant behaviour [None]
  - Sleep disorder [None]

NARRATIVE: CASE EVENT DATE: 20170627
